FAERS Safety Report 6451377-7 (Version None)
Quarter: 2009Q4

REPORT INFORMATION
  Report Type: 
  Country: None (occurrence: None)
  Receive Date: 20091120
  Receipt Date: 20091120
  Transmission Date: 20100525
  Serious: No
  Sender: FDA-Public Use
  Company Number: None

PATIENT
  Sex: Female

DRUGS (1)
  1. NITROGLYCERIN [Suspect]
     Dosage: 0.4MG ONE Q 5 MINUTES X 3 DOSES SUBLING PRN PRODUCT
     Route: 060
     Dates: start: 20090727

REACTIONS (1)
  - PRODUCT SOLUBILITY ABNORMAL [None]
